FAERS Safety Report 10891987 (Version 1)
Quarter: 2015Q1

REPORT INFORMATION
  Report Type: Spontaneous
  Country: US (occurrence: US)
  Receive Date: 20150306
  Receipt Date: 20150306
  Transmission Date: 20150721
  Serious: No
  Sender: FDA-Public Use
  Company Number: US-009507513-1503USA003322

PATIENT
  Sex: Female
  Weight: 52.61 kg

DRUGS (1)
  1. NEXPLANON [Suspect]
     Active Substance: ETONOGESTREL
     Dosage: DOSE: UNKNOWN, FREQUENCY: 3 YEARS
     Route: 059
     Dates: start: 201408

REACTIONS (2)
  - Hypersensitivity [Unknown]
  - Haemorrhage [Unknown]

NARRATIVE: CASE EVENT DATE: 201408
